FAERS Safety Report 22345171 (Version 1)
Quarter: 2023Q2

REPORT INFORMATION
  Report Type: Spontaneous
  Country: GB (occurrence: GB)
  Receive Date: 20230519
  Receipt Date: 20230519
  Transmission Date: 20230721
  Serious: Yes (Other)
  Sender: FDA-Public Use
  Company Number: None

PATIENT
  Age: 4 Year
  Sex: Male
  Weight: 20 kg

DRUGS (1)
  1. MONTELUKAST [Suspect]
     Active Substance: MONTELUKAST SODIUM
     Indication: Asthma
     Dosage: 1 TABLET AT NIGHT
     Route: 065
     Dates: end: 202304

REACTIONS (6)
  - Mood altered [Recovering/Resolving]
  - Aggression [Recovering/Resolving]
  - Self esteem decreased [Recovering/Resolving]
  - Suicidal ideation [Recovering/Resolving]
  - Dissociation [Recovering/Resolving]
  - Anger [Recovering/Resolving]

NARRATIVE: CASE EVENT DATE: 20220101
